FAERS Safety Report 7358532-2 (Version None)
Quarter: 2011Q1

REPORT INFORMATION
  Report Type: 
  Country: None (occurrence: None)
  Receive Date: 20110317
  Receipt Date: 20110307
  Transmission Date: 20110831
  Serious: Yes (Hospitalization)
  Sender: FDA-Public Use
  Company Number: CA-JNJFOC-20110302760

PATIENT
  Sex: Male
  Weight: 123.1 kg

DRUGS (2)
  1. STELARA [Suspect]
     Route: 058
  2. STELARA [Suspect]
     Indication: PSORIASIS
     Route: 058

REACTIONS (16)
  - POOR QUALITY SLEEP [None]
  - HEADACHE [None]
  - ANAEMIA [None]
  - BLOOD PRESSURE INCREASED [None]
  - CHROMATURIA [None]
  - BLOOD BILIRUBIN INCREASED [None]
  - POLYCHROMASIA [None]
  - BLOOD LACTATE DEHYDROGENASE INCREASED [None]
  - PAIN [None]
  - STAPHYLOCOCCAL INFECTION [None]
  - THROMBOTIC THROMBOCYTOPENIC PURPURA [None]
  - VOMITING [None]
  - ASTHENIA [None]
  - PRODUCT CONTAMINATION [None]
  - MALAISE [None]
  - HAEMOLYSIS [None]
